FAERS Safety Report 7280586-2 (Version None)
Quarter: 2011Q1

REPORT INFORMATION
  Report Type: 
  Country: None (occurrence: None)
  Receive Date: 20110208
  Receipt Date: 20101224
  Transmission Date: 20110831
  Serious: Yes (Hospitalization, Other)
  Sender: FDA-Public Use
  Company Number: US-BAYER-201021444NA

PATIENT
  Sex: Female

DRUGS (5)
  1. SPIRONOLACTONE [Concomitant]
  2. METFORMIN [Concomitant]
  3. YASMIN [Suspect]
     Route: 048
  4. GLUCOPHAGE [Concomitant]
  5. YAZ [Suspect]
     Route: 048

REACTIONS (6)
  - DYSPNOEA [None]
  - DEEP VEIN THROMBOSIS [None]
  - PULMONARY EMBOLISM [None]
  - OEDEMA PERIPHERAL [None]
  - CHEST PAIN [None]
  - DYSPNOEA EXERTIONAL [None]
